FAERS Safety Report 4280591-4 (Version None)
Quarter: 2004Q1

REPORT INFORMATION
  Report Type: 
  Country: None (occurrence: None)
  Receive Date: 20040127
  Receipt Date: 20040121
  Transmission Date: 20041129
  Serious: Yes (Hospitalization)
  Sender: FDA-Public Use
  Company Number: 200310408BYL

PATIENT
  Age: 66 Year
  Sex: Male
  Weight: 72.2 kg

DRUGS (7)
  1. ASPIRIN [Suspect]
     Indication: PRINZMETAL ANGINA
     Dosage: 200 MG, TOTAL DAILY, ORAL
     Route: 048
     Dates: start: 20031003, end: 20031017
  2. ITOROL [Concomitant]
  3. CIPROXAN [Concomitant]
  4. BROCIN [Concomitant]
  5. APRICOT KERNEL WATER [Concomitant]
  6. MEDICON [Concomitant]
  7. PL GRAN [Concomitant]

REACTIONS (2)
  - DRUG INTERACTION [None]
  - INTERSTITIAL LUNG DISEASE [None]
